FAERS Safety Report 5425480-4 (Version None)
Quarter: 2007Q3

REPORT INFORMATION
  Report Type: 
  Country: None (occurrence: None)
  Receive Date: 20070731
  Receipt Date: 20070412
  Transmission Date: 20080115
  Serious: No
  Sender: FDA-Public Use
  Company Number: US200704001680

PATIENT
  Age: 62 Year
  Sex: Male

DRUGS (5)
  1. BYETTA [Suspect]
     Indication: TYPE 2 DIABETES MELLITUS
     Dosage: 5 UG, 2/D, SUBCUTANEOUS, 10 UG, 2/D, SUBCUTANEOUS
     Route: 058
     Dates: start: 20070301, end: 20070330
  2. BYETTA [Suspect]
     Indication: TYPE 2 DIABETES MELLITUS
     Dosage: 5 UG, 2/D, SUBCUTANEOUS, 10 UG, 2/D, SUBCUTANEOUS
     Route: 058
     Dates: start: 20070331
  3. EXENATIDE 5MCG PEN, DISPOSABLE DEVICE (EXENATIDE PEN (5 MCG)) PEN, DIS [Concomitant]
  4. AVANDIA [Concomitant]
  5. METFORMIN HCL [Concomitant]

REACTIONS (5)
  - ABDOMINAL PAIN UPPER [None]
  - ACCIDENTAL OVERDOSE [None]
  - BLOOD GLUCOSE INCREASED [None]
  - HEADACHE [None]
  - NAUSEA [None]
